FAERS Safety Report 14985877 (Version 2)
Quarter: 2018Q2

REPORT INFORMATION
  Report Type: Report from Study
  Country: US (occurrence: US)
  Receive Date: 20180607
  Receipt Date: 20180626
  Transmission Date: 20180711
  Serious: Yes (Other)
  Sender: FDA-Public Use
  Company Number: US-TESARO, INC-US-2018TSO02700

PATIENT

DRUGS (1)
  1. ZEJULA [Suspect]
     Active Substance: NIRAPARIB
     Indication: OVARIAN CANCER
     Dosage: 300 MG, QD
     Route: 048
     Dates: start: 20180524

REACTIONS (9)
  - Walking aid user [Unknown]
  - Fatigue [Unknown]
  - Constipation [Unknown]
  - Asthenia [Unknown]
  - Wheelchair user [Unknown]
  - Central nervous system lesion [Unknown]
  - Decreased appetite [Unknown]
  - Dry mouth [Unknown]
  - Gait disturbance [Unknown]
